FAERS Safety Report 9598465 (Version 2)
Quarter: 2013Q4

REPORT INFORMATION
  Report Type: Spontaneous
  Country: US (occurrence: US)
  Receive Date: 20131004
  Receipt Date: 20131004
  Transmission Date: 20140711
  Serious: No
  Sender: FDA-Public Use
  Company Number: US-AMGEN-USASP2013022305

PATIENT
  Age: 65 Year
  Sex: Female

DRUGS (11)
  1. ENBREL [Suspect]
     Indication: RHEUMATOID ARTHRITIS
     Dosage: UNK
     Dates: start: 201301, end: 201302
  2. VITAMIN B1 [Concomitant]
     Dosage: UNK
  3. B COMPLEX                          /06817001/ [Concomitant]
     Dosage: UNK
  4. VITAMIN C                          /00008001/ [Concomitant]
     Dosage: UNK
  5. VITAMIN D                          /00107901/ [Concomitant]
     Dosage: UNK
  6. VITAMIN E                          /00110501/ [Concomitant]
     Dosage: UNK
  7. PREDNISONE [Concomitant]
     Dosage: UNK
  8. TURMERIC                           /01079602/ [Concomitant]
     Dosage: UNK
  9. KELP                               /01214901/ [Concomitant]
     Dosage: UNK
  10. CALCIUM [Concomitant]
     Dosage: UNK
  11. MAGNESIUM [Concomitant]
     Dosage: UNK

REACTIONS (1)
  - Psoriasis [Unknown]
